FAERS Safety Report 11811332 (Version 2)
Quarter: 2016Q1

REPORT INFORMATION
  Report Type: Spontaneous
  Country: US (occurrence: US)
  Receive Date: 20151208
  Receipt Date: 20160323
  Transmission Date: 20160525
  Serious: No
  Sender: FDA-Public Use
  Company Number: US-CELGENEUS-USA-2015116239

PATIENT
  Sex: Female

DRUGS (2)
  1. OTEZLA [Suspect]
     Active Substance: APREMILAST
     Indication: PSORIASIS
     Dosage: 60 MILLIGRAM
     Route: 048
     Dates: start: 20150511
  2. OTEZLA [Suspect]
     Active Substance: APREMILAST
     Indication: PSORIATIC ARTHROPATHY

REACTIONS (8)
  - Nausea [Unknown]
  - Weight decreased [Unknown]
  - Drug ineffective [Unknown]
  - Decreased appetite [Unknown]
  - Defaecation urgency [Unknown]
  - Disease recurrence [Unknown]
  - Diarrhoea [Unknown]
  - Cough [Unknown]

NARRATIVE: CASE EVENT DATE: 20150511
